FAERS Safety Report 9011867 (Version 1)
Quarter: 2013Q1

REPORT INFORMATION
  Report Type: Spontaneous
  Country: FR (occurrence: FR)
  Receive Date: 20130113
  Receipt Date: 20130113
  Transmission Date: 20140127
  Serious: Yes (Other)
  Sender: FDA-Public Use
  Company Number: FR-AMGEN-FRASP2013001147

PATIENT
  Age: 75 Year
  Sex: Male

DRUGS (7)
  1. VECTIBIX [Suspect]
     Indication: PRODUCT USED FOR UNKNOWN INDICATION
     Dosage: UNK
  2. MORPHINE [Concomitant]
     Dosage: UNK
  3. ZOLOFT [Concomitant]
     Dosage: UNK
  4. XANAX [Concomitant]
     Dosage: UNK
  5. GARDENAL                           /00023201/ [Concomitant]
     Dosage: UNK
  6. CYCLIN [Concomitant]
     Indication: PROPHYLAXIS
     Dosage: UNK
  7. DIURETICS [Concomitant]
     Dosage: UNK

REACTIONS (2)
  - Hepatitis acute [Unknown]
  - Cell death [Unknown]
